FAERS Safety Report 12099236 (Version 2)
Quarter: 2016Q2

REPORT INFORMATION
  Report Type: Spontaneous
  Country: US (occurrence: US)
  Receive Date: 20160222
  Receipt Date: 20160405
  Transmission Date: 20160815
  Serious: Yes (Death, Hospitalization, Other)
  Sender: FDA-Public Use
  Company Number: US-PFIZER INC-2015477646

PATIENT
  Age: 85 Year
  Sex: Female

DRUGS (1)
  1. XALKORI [Suspect]
     Active Substance: CRIZOTINIB
     Indication: LUNG CARCINOMA CELL TYPE UNSPECIFIED STAGE IV
     Dosage: UNK

REACTIONS (7)
  - Disease progression [Fatal]
  - Diarrhoea [Unknown]
  - Fatigue [Unknown]
  - Hypersomnia [Unknown]
  - Lung carcinoma cell type unspecified stage IV [Fatal]
  - Pulmonary thrombosis [Unknown]
  - Dyspnoea [Unknown]
